FAERS Safety Report 12719019 (Version 1)
Quarter: 2016Q3

REPORT INFORMATION
  Report Type: Other
  Country: US (occurrence: US)
  Receive Date: 20160906
  Receipt Date: 20160906
  Transmission Date: 20161109
  Serious: No
  Sender: FDA-Public Use
  Company Number: US-COL_20503_2015

PATIENT
  Sex: Male

DRUGS (1)
  1. COLGATE TOTAL ADVANCED WHITENING [Suspect]
     Active Substance: SODIUM FLUORIDE\TRICLOSAN
     Indication: PRODUCT USED FOR UNKNOWN INDICATION
     Dosage: A PEA SIZE ON THE TOOTHBRUSH/ BID/
     Route: 048
     Dates: start: 20150805, end: 20150812

REACTIONS (2)
  - Lip pain [Not Recovered/Not Resolved]
  - Lip disorder [Not Recovered/Not Resolved]

NARRATIVE: CASE EVENT DATE: 20150812
